FAERS Safety Report 5671614-6 (Version None)
Quarter: 2008Q1

REPORT INFORMATION
  Report Type: 
  Country: None (occurrence: None)
  Receive Date: 20080313
  Receipt Date: 20080229
  Transmission Date: 20080703
  Serious: Yes (Other)
  Sender: FDA-Public Use
  Company Number: 100#03#2008-01248

PATIENT
  Age: 72 Year
  Sex: Female

DRUGS (7)
  1. LISINOPRIL [Suspect]
     Indication: HYPERTENSION
     Dosage: 10 MG
  2. SPIRONOLACTONE [Suspect]
     Indication: HYPERTENSION
     Dosage: 12.5 MG ONCE DAILY
  3. ATENOLOL [Suspect]
     Indication: HYPERTENSION
  4. DOXAZOSIN (DOXAZOSIN) [Suspect]
     Indication: HYPERTENSION
  5. MOXONIDINE (MOXONIDINE) [Suspect]
     Indication: HYPERTENSION
  6. FELODIPINE [Concomitant]
  7. BENDROFLUMETHIAZIDE (BENDROFLUMETHIAZIDE) [Concomitant]

REACTIONS (11)
  - BLOOD CREATININE INCREASED [None]
  - BLOOD PRESSURE INADEQUATELY CONTROLLED [None]
  - BLOOD PRESSURE INCREASED [None]
  - BLOOD UREA INCREASED [None]
  - BRONCHOSPASM [None]
  - DRUG INTOLERANCE [None]
  - EPISTAXIS [None]
  - HYPERKALAEMIA [None]
  - NASAL CONGESTION [None]
  - NAUSEA [None]
  - NO THERAPEUTIC RESPONSE [None]
